FAERS Safety Report 15857867 (Version 2)
Quarter: 2019Q1

REPORT INFORMATION
  Report Type: Spontaneous
  Country: US (occurrence: US)
  Receive Date: 20190123
  Receipt Date: 20190301
  Transmission Date: 20190417
  Serious: Yes (Hospitalization)
  Sender: FDA-Public Use
  Company Number: US-ASTRAZENECA-2019SE12087

PATIENT
  Age: 23732 Day
  Sex: Female
  Weight: 63 kg

DRUGS (13)
  1. POTASSIUM CHLORIDE. [Concomitant]
     Active Substance: POTASSIUM CHLORIDE
     Route: 048
  2. PRO AIR RESP CLICK [Concomitant]
     Indication: INHALATION THERAPY
     Dosage: 108 UG/INHAL, 2 PUFFS EVERY 6 HOURS AS NEEDED
     Route: 055
  3. SPIRIVA [Concomitant]
     Active Substance: TIOTROPIUM BROMIDE MONOHYDRATE
     Indication: CHRONIC OBSTRUCTIVE PULMONARY DISEASE
     Dosage: 18UG/INHAL DAILY
     Route: 055
     Dates: start: 2016
  4. MUCUS RELIEF ER [Concomitant]
     Active Substance: GUAIFENESIN
     Indication: SECRETION DISCHARGE
     Route: 048
  5. PROPRANOLOL [Concomitant]
     Active Substance: PROPRANOLOL HYDROCHLORIDE
     Route: 048
  6. LEVOTHYROXINE. [Concomitant]
     Active Substance: LEVOTHYROXINE
     Route: 048
  7. TRAZODONE [Concomitant]
     Active Substance: TRAZODONE HYDROCHLORIDE
     Indication: SLEEP DISORDER
     Route: 048
     Dates: start: 2018
  8. SYMBICORT [Suspect]
     Active Substance: BUDESONIDE\FORMOTEROL FUMARATE DIHYDRATE
     Indication: CHRONIC OBSTRUCTIVE PULMONARY DISEASE
     Dosage: 160/4.5 MCG 2 PUFFS TWICE DAILY
     Route: 055
     Dates: start: 2016
  9. OMEPRAZOLE. [Suspect]
     Active Substance: OMEPRAZOLE
     Route: 048
  10. CALCIUM [Concomitant]
     Active Substance: CALCIUM
     Dosage: 600 MG
     Route: 048
  11. AMLODIPINE [Concomitant]
     Active Substance: AMLODIPINE BESYLATE
     Route: 048
     Dates: start: 1999
  12. IRBESARTAN. [Concomitant]
     Active Substance: IRBESARTAN
     Route: 048
  13. PRAVASTATIN. [Concomitant]
     Active Substance: PRAVASTATIN
     Route: 048

REACTIONS (10)
  - Atrial fibrillation [Unknown]
  - Tremor [Unknown]
  - Intentional device misuse [Unknown]
  - Asthenia [Unknown]
  - Macular degeneration [Unknown]
  - Dyspnoea [Recovering/Resolving]
  - Chronic obstructive pulmonary disease [Unknown]
  - Device malfunction [Unknown]
  - Visual acuity reduced [Unknown]
  - International normalised ratio increased [Unknown]

NARRATIVE: CASE EVENT DATE: 19991219
